FAERS Safety Report 16256049 (Version 3)
Quarter: 2019Q2

REPORT INFORMATION
  Report Type: Spontaneous
  Country: US (occurrence: US)
  Receive Date: 20190430
  Receipt Date: 20190520
  Transmission Date: 20190711
  Serious: No
  Sender: FDA-Public Use
  Company Number: US-PFIZER INC-2019180558

PATIENT
  Age: 67 Year
  Sex: Female
  Weight: 50.8 kg

DRUGS (2)
  1. AZULFIDINE [Suspect]
     Active Substance: SULFASALAZINE
     Indication: COLITIS
     Dosage: 500 MG, 3X/DAY
  2. AZULFIDINE [Suspect]
     Active Substance: SULFASALAZINE
     Indication: INFLAMMATION

REACTIONS (3)
  - Drug ineffective [Not Recovered/Not Resolved]
  - Gastrointestinal pain [Not Recovered/Not Resolved]
  - Abdominal discomfort [Not Recovered/Not Resolved]

NARRATIVE: CASE EVENT DATE: 2017
